FAERS Safety Report 8858800 (Version 2)
Quarter: 2013Q2

REPORT INFORMATION
  Report Type: Spontaneous
  Country: US (occurrence: US)
  Receive Date: 20121024
  Receipt Date: 20130401
  Transmission Date: 20140414
  Serious: Yes (Hospitalization)
  Sender: FDA-Public Use
  Company Number: US-BAYER-2012-109263

PATIENT
  Age: 35 Year
  Sex: Female

DRUGS (6)
  1. YAZ [Suspect]
  2. YASMIN [Suspect]
  3. HUMIRA [Concomitant]
     Indication: CROHN^S DISEASE
  4. PENTASA [Concomitant]
     Indication: CROHN^S DISEASE
  5. FIORICET [Concomitant]
     Dosage: UNK UNK, PRN
     Route: 048
  6. GIANVI [Suspect]

REACTIONS (4)
  - Pulmonary embolism [Recovered/Resolved]
  - Injury [Recovered/Resolved]
  - Pain [None]
  - Pain [Recovered/Resolved]
